FAERS Safety Report 5683541-9 (Version None)
Quarter: 2008Q1

REPORT INFORMATION
  Report Type: 
  Country: None (occurrence: None)
  Receive Date: 20080326
  Receipt Date: 20080313
  Transmission Date: 20080703
  Serious: Yes (Other)
  Sender: FDA-Public Use
  Company Number: 2008PL000025

PATIENT
  Age: 43 Year
  Sex: Male

DRUGS (1)
  1. AZATHIOPRINE [Suspect]
     Indication: NEUROPATHY PERIPHERAL
     Dosage: PO
     Route: 048

REACTIONS (6)
  - ANGIOPATHY [None]
  - GASTROINTESTINAL DISORDER [None]
  - POST PROCEDURAL BILE LEAK [None]
  - RENAL CELL CARCINOMA [None]
  - SQUAMOUS CELL CARCINOMA [None]
  - TUMOUR INVASION [None]
